FAERS Safety Report 13803052 (Version 1)
Quarter: 2017Q3

REPORT INFORMATION
  Report Type: Spontaneous
  Country: CA (occurrence: CA)
  Receive Date: 20170728
  Receipt Date: 20170728
  Transmission Date: 20171127
  Serious: Yes (Other)
  Sender: FDA-Public Use
  Company Number: CA-IPSEN BIOPHARMACEUTICALS, INC.-2017-08005

PATIENT
  Age: 62 Year
  Sex: Female

DRUGS (5)
  1. SANDOSTATIN [Suspect]
     Active Substance: OCTREOTIDE ACETATE
     Indication: ACROMEGALY
  2. PANTOPRAZOLE SODIUM. [Suspect]
     Active Substance: PANTOPRAZOLE SODIUM
     Indication: PRODUCT USED FOR UNKNOWN INDICATION
  3. LIPITOR [Suspect]
     Active Substance: ATORVASTATIN CALCIUM
     Indication: PRODUCT USED FOR UNKNOWN INDICATION
  4. SOMATULINE AUTOGEL [Suspect]
     Active Substance: LANREOTIDE ACETATE
     Indication: PRODUCT USED FOR UNKNOWN INDICATION
     Dosage: NOT REPORTED
     Route: 065
  5. SANDOSTATIN [Suspect]
     Active Substance: OCTREOTIDE ACETATE

REACTIONS (10)
  - Hepatic enzyme increased [Recovering/Resolving]
  - Inappropriate schedule of drug administration [Unknown]
  - Weight decreased [Recovering/Resolving]
  - Thyroid neoplasm [Recovering/Resolving]
  - Hepatic steatosis [Recovering/Resolving]
  - Blood growth hormone increased [Recovering/Resolving]
  - Anaemia [Recovering/Resolving]
  - Blood pressure increased [Recovering/Resolving]
  - Arrhythmia [Recovering/Resolving]
  - Spleen disorder [Recovering/Resolving]
